FAERS Safety Report 16930367 (Version 4)
Quarter: 2021Q1

REPORT INFORMATION
  Report Type: Spontaneous
  Country: TR (occurrence: TR)
  Receive Date: 20191017
  Receipt Date: 20210107
  Transmission Date: 20210419
  Serious: Yes (Other)
  Sender: FDA-Public Use
  Company Number: TR-PFIZER INC-2019444427

PATIENT
  Age: 27 Year
  Sex: Female

DRUGS (7)
  1. METHYLPREDNISOLONE ACETATE. [Suspect]
     Active Substance: METHYLPREDNISOLONE ACETATE
     Indication: DISSEMINATED TUBERCULOSIS
     Dosage: UNK
  2. PYRAZINAMIDE. [Suspect]
     Active Substance: PYRAZINAMIDE
     Indication: DISSEMINATED TUBERCULOSIS
     Dosage: 2000 MG, UNK
  3. ETHAMBUTOL [Suspect]
     Active Substance: ETHAMBUTOL HYDROCHLORIDE
     Indication: DISSEMINATED TUBERCULOSIS
     Dosage: 1500 MG, UNK
  4. MOXIFLOXACIN. [Suspect]
     Active Substance: MOXIFLOXACIN
     Indication: DISSEMINATED TUBERCULOSIS
     Dosage: 400 MG, UNK
  5. PAS [Suspect]
     Active Substance: AMINOSALICYLIC ACID
     Indication: DISSEMINATED TUBERCULOSIS
     Dosage: 9 G, UNK
  6. ETHIONAMIDE [Suspect]
     Active Substance: ETHIONAMIDE
     Indication: DISSEMINATED TUBERCULOSIS
     Dosage: 750 MG, UNK
  7. CYCLOSERINE. [Suspect]
     Active Substance: CYCLOSERINE
     Indication: DISSEMINATED TUBERCULOSIS
     Dosage: 750 MG, UNK

REACTIONS (4)
  - Drug hypersensitivity [Unknown]
  - Rash [Unknown]
  - Off label use [Unknown]
  - Pruritus [Unknown]
